FAERS Safety Report 6890760-2 (Version None)
Quarter: 2010Q3

REPORT INFORMATION
  Report Type: 
  Country: None (occurrence: None)
  Receive Date: 20100731
  Receipt Date: 20090313
  Transmission Date: 20110219
  Serious: No
  Sender: FDA-Public Use
  Company Number: US-PFIZER INC-2009158636

PATIENT
  Sex: Female
  Weight: 78.471 kg

DRUGS (1)
  1. LIPITOR [Suspect]
     Dosage: 20 MG, 1X/DAY
     Dates: start: 20080101, end: 20080101

REACTIONS (2)
  - GAIT DISTURBANCE [None]
  - MYALGIA [None]
